FAERS Safety Report 4275150-3 (Version None)
Quarter: 2004Q1

REPORT INFORMATION
  Report Type: 
  Country: None (occurrence: None)
  Receive Date: 20040116
  Receipt Date: 20031231
  Transmission Date: 20041129
  Serious: Yes (Hospitalization)
  Sender: FDA-Public Use
  Company Number: 2004SE00001

PATIENT
  Age: 36 Year
  Sex: Male
  Weight: 85 kg

DRUGS (2)
  1. SEROQUEL [Suspect]
     Indication: SCHIZOPHRENIA
     Dosage: 400 MG BID PO
     Route: 048
     Dates: start: 20010101
  2. SEROQUEL [Suspect]
     Indication: SCHIZOPHRENIA
     Dosage: 5.2 G ONCE PO
     Route: 048
     Dates: start: 20031001

REACTIONS (6)
  - HYPOTENSION [None]
  - INTENTIONAL OVERDOSE [None]
  - LEUKOCYTOSIS [None]
  - SINUS TACHYCARDIA [None]
  - SOMNOLENCE [None]
  - SUICIDE ATTEMPT [None]
